FAERS Safety Report 16724355 (Version 1)
Quarter: 2019Q3

REPORT INFORMATION
  Report Type: Spontaneous
  Country: DE (occurrence: DE)
  Receive Date: 20190821
  Receipt Date: 20190821
  Transmission Date: 20191005
  Serious: Yes (Hospitalization)
  Sender: FDA-Public Use
  Company Number: DE-PFIZER INC-2019355645

PATIENT
  Age: 29 Year
  Sex: Male

DRUGS (1)
  1. PREGABALIN. [Suspect]
     Active Substance: PREGABALIN
     Dosage: 2 DF (CAPSULES), UNK

REACTIONS (2)
  - Product administration error [Unknown]
  - Seizure [Unknown]

NARRATIVE: CASE EVENT DATE: 20180207
